FAERS Safety Report 6755531-6 (Version None)
Quarter: 2010Q2

REPORT INFORMATION
  Report Type: 
  Country: None (occurrence: None)
  Receive Date: 20100602
  Receipt Date: 20100521
  Transmission Date: 20101027
  Serious: Yes (Other)
  Sender: FDA-Public Use
  Company Number: 2010SP019414

PATIENT
  Age: 60 Year
  Sex: Male

DRUGS (4)
  1. REMERON [Suspect]
     Indication: DEPRESSION
     Dosage: 15 MG;QD; PO; 30 MG; QD; PO
     Route: 048
     Dates: start: 20100217, end: 20100218
  2. REMERON [Suspect]
     Indication: DEPRESSION
     Dosage: 15 MG;QD; PO; 30 MG; QD; PO
     Route: 048
     Dates: start: 20100219, end: 20100223
  3. NU-LOTAN [Concomitant]
  4. WARFARIN [Concomitant]

REACTIONS (8)
  - DELUSION [None]
  - DIET REFUSAL [None]
  - HALLUCINATION, AUDITORY [None]
  - MANIA [None]
  - PERSECUTORY DELUSION [None]
  - PLEURAL EFFUSION [None]
  - PNEUMONIA [None]
  - RESPIRATORY FAILURE [None]
